FAERS Safety Report 25628458 (Version 1)
Quarter: 2025Q3

REPORT INFORMATION
  Report Type: Spontaneous
  Country: US (occurrence: US)
  Receive Date: 20250731
  Receipt Date: 20250731
  Transmission Date: 20251020
  Serious: No
  Sender: Alora Pharma
  Company Number: US-VERTICAL PHARMACEUTICALS-2024ALO00413

PATIENT
  Sex: Female

DRUGS (1)
  1. ESTRADIOL [Suspect]
     Active Substance: ESTRADIOL
     Indication: Menopausal symptoms
     Route: 061

REACTIONS (2)
  - Drug ineffective [Unknown]
  - Menopausal symptoms [Unknown]
